FAERS Safety Report 6307351-4 (Version None)
Quarter: 2009Q3

REPORT INFORMATION
  Report Type: 
  Country: None (occurrence: None)
  Receive Date: 20090813
  Receipt Date: 20090803
  Transmission Date: 20100115
  Serious: Yes (Hospitalization, Other)
  Sender: FDA-Public Use
  Company Number: US-JNJFOC-20090500842

PATIENT
  Sex: Female
  Weight: 102.06 kg

DRUGS (3)
  1. REMICADE [Suspect]
     Dosage: DOSE: 4-5 VIALS
     Route: 042
  2. REMICADE [Suspect]
     Route: 042
  3. REMICADE [Suspect]
     Indication: RHEUMATOID ARTHRITIS
     Dosage: DOSE: 4-5 VIALS
     Route: 042

REACTIONS (3)
  - CEREBRAL INFARCTION [None]
  - PERONEAL NERVE PALSY [None]
  - SYNCOPE [None]
